FAERS Safety Report 10098314 (Version 9)
Quarter: 2015Q2

REPORT INFORMATION
  Report Type: Spontaneous
  Country: US (occurrence: None)
  Receive Date: 20140421
  Receipt Date: 20150506
  Transmission Date: 20150821
  Serious: Yes (Hospitalization, Other)
  Sender: FDA-Public Use
  Company Number: ADR-2014-00632

PATIENT
  Age: 51 Year
  Sex: Female

DRUGS (4)
  1. LIORESAL [Suspect]
     Active Substance: BACLOFEN
     Indication: MUSCLE SPASTICITY
  2. ORAL BACLOFEN [Suspect]
     Active Substance: BACLOFEN
  3. OXYCONTIN [Suspect]
     Active Substance: OXYCODONE HYDROCHLORIDE
     Route: 048
  4. OXYCODONE [Suspect]
     Active Substance: OXYCODONE
     Route: 048

REACTIONS (25)
  - Fatigue [None]
  - Wrong technique in drug usage process [None]
  - Periorbital contusion [None]
  - Device failure [None]
  - Musculoskeletal stiffness [None]
  - Device malfunction [None]
  - Seizure [None]
  - Muscle spasms [None]
  - Condition aggravated [None]
  - Drug abuse [None]
  - Drug effect decreased [None]
  - Stress [None]
  - Overdose [None]
  - Headache [None]
  - Incorrect dose administered [None]
  - Memory impairment [None]
  - Paralysis [None]
  - Accidental overdose [None]
  - Device breakage [None]
  - Confusional state [None]
  - Crying [None]
  - Sleep disorder [None]
  - Insomnia [None]
  - Movement disorder [None]
  - Withdrawal syndrome [None]
